FAERS Safety Report 7125354-7 (Version None)
Quarter: 2010Q4

REPORT INFORMATION
  Report Type: 
  Country: None (occurrence: None)
  Receive Date: 20101129
  Receipt Date: 20101118
  Transmission Date: 20110411
  Serious: Yes (Other)
  Sender: FDA-Public Use
  Company Number: PHHY2010US79320

PATIENT
  Sex: Male

DRUGS (1)
  1. FOCALIN XR [Suspect]
     Dosage: 30 MG, QD
     Route: 048

REACTIONS (4)
  - AGITATION [None]
  - HALLUCINATION, VISUAL [None]
  - PARANOIA [None]
  - PSYCHOMOTOR HYPERACTIVITY [None]
